FAERS Safety Report 4822656-1 (Version None)
Quarter: 2005Q4

REPORT INFORMATION
  Report Type: 
  Country: None (occurrence: None)
  Receive Date: 20051107
  Receipt Date: 20051107
  Transmission Date: 20060501
  Serious: Yes (Hospitalization, Other)
  Sender: FDA-Public Use
  Company Number: None

PATIENT
  Sex: Female
  Weight: 47 kg

DRUGS (2)
  1. CISPLATIN [Suspect]
     Indication: CERVIX CARCINOMA
     Dosage: SEE IMAGE
     Dates: start: 20051026, end: 20051026
  2. NAVELBINE BITARTRATE [Suspect]
     Dosage: SEE IMAGE
     Dates: start: 20051026, end: 20051026

REACTIONS (6)
  - BLADDER NEOPLASM [None]
  - BLADDER OBSTRUCTION [None]
  - HYDRONEPHROSIS [None]
  - PELVIC PAIN [None]
  - PROCTALGIA [None]
  - UROGENITAL FISTULA [None]
